FAERS Safety Report 9058895 (Version 1)
Quarter: 2013Q1

REPORT INFORMATION
  Report Type: Spontaneous
  Country: US (occurrence: US)
  Receive Date: 20130211
  Receipt Date: 20130211
  Transmission Date: 20140127
  Serious: No
  Sender: FDA-Public Use
  Company Number: US-BRISTOL-MYERS SQUIBB COMPANY-16327074

PATIENT
  Age: 63 Year
  Sex: Female

DRUGS (1)
  1. METFORMIN HCL TABS [Suspect]
     Indication: TYPE 2 DIABETES MELLITUS
     Dosage: 4 MONTHS AGO
     Route: 048

REACTIONS (3)
  - Influenza like illness [Not Recovered/Not Resolved]
  - Diarrhoea [Not Recovered/Not Resolved]
  - Malaise [Not Recovered/Not Resolved]
